FAERS Safety Report 11024599 (Version 1)
Quarter: 2015Q2

REPORT INFORMATION
  Report Type: Spontaneous
  Country: US (occurrence: None)
  Receive Date: 20150413
  Receipt Date: 20150413
  Transmission Date: 20150821
  Serious: Yes (Life-Threatening, Hospitalization)
  Sender: FDA-Public Use
  Company Number: None

PATIENT
  Age: 54 Year
  Sex: Female
  Weight: 87 kg

DRUGS (19)
  1. CLINDAMYCIN 450 MG [Suspect]
     Active Substance: CLINDAMYCIN\CLINDAMYCIN PHOSPHATE
     Indication: PNEUMONIA ASPIRATION
     Route: 042
  2. FISH OIL-OMEGA-3 FATTY ACIDS [Concomitant]
  3. MULTIPLE VITAMIN (MULTIVITAMINS PO) [Concomitant]
  4. LEVETIRACETAM (KEPPRA) [Concomitant]
  5. ASCORBIC ACID (VITAMIN C) [Concomitant]
     Active Substance: ASCORBIC ACID
  6. DOCUSATE SODIUM-SENNOSIDES (SENOKOT S) [Concomitant]
  7. SOLIFENACIN (VESICARE) [Concomitant]
  8. PAROXETINE (PAXIL) [Concomitant]
  9. ASPIRIN. [Concomitant]
     Active Substance: ASPIRIN
  10. CALCIUM CARBONATE -VITAMIN D (CALTRATE+D) [Concomitant]
  11. DOCUSATE SODIUM (COLACE) [Concomitant]
  12. ZIPRASIDONE (GEODON) [Concomitant]
  13. XANAX [Concomitant]
     Active Substance: ALPRAZOLAM
  14. LISINOPRIL (ZESTRIL) [Concomitant]
  15. LEVAQUIN [Concomitant]
     Active Substance: LEVOFLOXACIN
  16. PANTOPRAZOLE (PROTONIX) [Concomitant]
  17. FERROUS SULFATE [Concomitant]
     Active Substance: FERROUS SULFATE\FERROUS SULFATE, DRIED
  18. EFFEXOR [Concomitant]
     Active Substance: VENLAFAXINE HYDROCHLORIDE
  19. AMPHETAMINE-DEXTROAMPHETAMINE (ADDERALL XR) [Concomitant]

REACTIONS (3)
  - Salivary hypersecretion [None]
  - Swollen tongue [None]
  - Drug hypersensitivity [None]

NARRATIVE: CASE EVENT DATE: 20150314
